FAERS Safety Report 15116566 (Version 2)
Quarter: 2018Q3

REPORT INFORMATION
  Report Type: Spontaneous
  Country: US (occurrence: US)
  Receive Date: 20180706
  Receipt Date: 20180803
  Transmission Date: 20181010
  Serious: No
  Sender: FDA-Public Use
  Company Number: US-ASTRAZENECA-2018SE82024

PATIENT
  Age: 28680 Day
  Sex: Male

DRUGS (2)
  1. ALBUTEROL. [Concomitant]
     Active Substance: ALBUTEROL
     Indication: DYSPNOEA
     Dosage: AS REQUIRED
     Route: 055
     Dates: start: 20180617
  2. PULMICORT FLEXHALER [Suspect]
     Active Substance: BUDESONIDE
     Indication: DYSPNOEA
     Route: 055
     Dates: start: 20180617

REACTIONS (5)
  - Drug dose omission [Unknown]
  - Off label use [Unknown]
  - Lung disorder [Unknown]
  - Product use in unapproved indication [Unknown]
  - Device failure [Unknown]

NARRATIVE: CASE EVENT DATE: 20180617
